FAERS Safety Report 26139889 (Version 1)
Quarter: 2025Q4

REPORT INFORMATION
  Report Type: Spontaneous
  Country: CN (occurrence: CN)
  Receive Date: 20251210
  Receipt Date: 20251210
  Transmission Date: 20260117
  Serious: Yes (Other)
  Sender: ARGENX BVBA
  Company Number: CN-ARGENX-2025-ARGX-CN016744

PATIENT

DRUGS (3)
  1. EFGARTIGIMOD ALFA [Suspect]
     Active Substance: EFGARTIGIMOD ALFA
     Indication: Encephalitis
     Dosage: UNK, 1/WEEK
     Route: 042
     Dates: start: 20240421, end: 202405
  2. LEVETIRACETAM [Concomitant]
     Active Substance: LEVETIRACETAM
     Indication: Encephalitis
     Dosage: UNK
     Route: 065
     Dates: start: 20240419
  3. TAMOXIFEN [Concomitant]
     Active Substance: TAMOXIFEN
     Indication: Encephalitis
     Route: 065

REACTIONS (7)
  - Lung adenocarcinoma [Unknown]
  - Invasive ductal breast carcinoma [Unknown]
  - Pyrexia [Recovered/Resolved]
  - Ataxia [Recovered/Resolved]
  - Dizziness [Recovered/Resolved]
  - Drug effective for unapproved indication [Unknown]
  - Off label use [Unknown]

NARRATIVE: CASE EVENT DATE: 20240401
